FAERS Safety Report 18405339 (Version 5)
Quarter: 2022Q1

REPORT INFORMATION
  Report Type: Spontaneous
  Country: US (occurrence: US)
  Receive Date: 20201020
  Receipt Date: 20220310
  Transmission Date: 20220423
  Serious: No
  Sender: FDA-Public Use
  Company Number: US-PFIZER INC-2020405841

PATIENT
  Age: 62 Year
  Sex: Female

DRUGS (2)
  1. XELJANZ XR [Suspect]
     Active Substance: TOFACITINIB CITRATE
     Indication: Rheumatoid arthritis
     Dosage: 11 MG, DAILY
     Route: 048
     Dates: start: 20201020
  2. ATORVASTATIN [Concomitant]
     Active Substance: ATORVASTATIN
     Indication: Blood cholesterol increased
     Dosage: UNK

REACTIONS (9)
  - Therapeutic product effect incomplete [Unknown]
  - Muscle disorder [Unknown]
  - Fibromyalgia [Unknown]
  - Muscle spasms [Unknown]
  - Nodule [Unknown]
  - Pain in extremity [Unknown]
  - Arthralgia [Unknown]
  - Lipids increased [Unknown]
  - Arthralgia [Recovered/Resolved]
